FAERS Safety Report 13008256 (Version 1)
Quarter: 2016Q4

REPORT INFORMATION
  Report Type: Spontaneous
  Country: NO (occurrence: NO)
  Receive Date: 20161208
  Receipt Date: 20161208
  Transmission Date: 20170207
  Serious: Yes (Death)
  Sender: FDA-Public Use
  Company Number: NO-ACCORD-046430

PATIENT
  Age: 42 Year
  Sex: Female

DRUGS (6)
  1. EMEND [Concomitant]
     Active Substance: APREPITANT
     Route: 048
  2. CISPLATIN. [Suspect]
     Active Substance: CISPLATIN
     Indication: CERVIX CARCINOMA
     Route: 051
     Dates: start: 20160224, end: 20160322
  3. OPIUM DROPS / TINCTURES SA [Concomitant]
     Indication: DIARRHOEA
  4. ZOFRAN [Concomitant]
     Active Substance: ONDANSETRON HYDROCHLORIDE
  5. LOPERAMID MYLAN [Concomitant]
     Active Substance: LOPERAMIDE
  6. AFIPRAN [Concomitant]
     Active Substance: METOCLOPRAMIDE HYDROCHLORIDE
     Dosage: 1TABLETT  X 1-3 A DAY

REACTIONS (1)
  - Sudden death [Fatal]

NARRATIVE: CASE EVENT DATE: 20160329
